FAERS Safety Report 12766151 (Version 1)
Quarter: 2016Q3

REPORT INFORMATION
  Report Type: Spontaneous
  Country: US (occurrence: US)
  Receive Date: 20160920
  Receipt Date: 20160920
  Transmission Date: 20161109
  Serious: Yes (Life-Threatening)
  Sender: FDA-Public Use
  Company Number: None

PATIENT
  Age: 53 Year
  Sex: Female

DRUGS (1)
  1. HUMIRA [Suspect]
     Active Substance: ADALIMUMAB
     Indication: PSORIATIC ARTHROPATHY
     Dosage: OTHER STRENGTH:;OTHER DOSE:;OTHER FREQUENCY:Q14D;OTHER ROUTE:
     Route: 058
     Dates: end: 20160920

REACTIONS (1)
  - Colon cancer [None]

NARRATIVE: CASE EVENT DATE: 20160901
